FAERS Safety Report 7221347-X (Version None)
Quarter: 2011Q1

REPORT INFORMATION
  Report Type: 
  Country: None (occurrence: None)
  Receive Date: 20110112
  Receipt Date: 20110103
  Transmission Date: 20110831
  Serious: Yes (Death)
  Sender: FDA-Public Use
  Company Number: US-SANOFI-AVENTIS-2010SA057447

PATIENT
  Age: 53 Year
  Sex: Female
  Weight: 62.72 kg

DRUGS (10)
  1. FERRLECIT [Suspect]
     Route: 051
     Dates: start: 20100916, end: 20100916
  2. NORMAL SALINE [Concomitant]
     Dosage: 25 MG OF BENADRYL AND 10 MG OF DECADRON IN 50 ML OF NORMAL SALINE
     Route: 042
  3. CYMBALTA [Concomitant]
  4. PREVACID [Concomitant]
     Indication: GASTRIC DISORDER
  5. DEXAMETHASONE [Concomitant]
     Route: 042
  6. DIPHENHYDRAMINE HYDROCHLORIDE [Concomitant]
     Indication: PREMEDICATION
     Route: 042
  7. NEURONTIN [Concomitant]
  8. NORMAL SALINE [Concomitant]
     Dosage: 125 MG OF FERRLECIT IN 250 ML OF NORMAL SALINE
     Route: 042
  9. SEROQUEL [Concomitant]
  10. DILAUDID [Concomitant]

REACTIONS (1)
  - DEATH [None]
